FAERS Safety Report 12085589 (Version 1)
Quarter: 2016Q1

REPORT INFORMATION
  Report Type: Report from Study
  Country: GR (occurrence: GR)
  Receive Date: 20160217
  Receipt Date: 20160217
  Transmission Date: 20160526
  Serious: Yes (Death, Other)
  Sender: FDA-Public Use
  Company Number: GR-GLAXOSMITHKLINE-GR2016GSK022035

PATIENT
  Sex: Female
  Weight: 70 kg

DRUGS (1)
  1. ZANAMIVIR [Suspect]
     Active Substance: ZANAMIVIR
     Indication: INFLUENZA

REACTIONS (1)
  - Death [Fatal]

NARRATIVE: CASE EVENT DATE: 20160202
